FAERS Safety Report 8820758 (Version 1)
Quarter: 2012Q4

REPORT INFORMATION
  Report Type: 
  Country: BR (occurrence: BR)
  Receive Date: 20121002
  Receipt Date: 20121002
  Transmission Date: 20130627
  Serious: Yes (Other)
  Sender: FDA-Public Use
  Company Number: BR-ROCHE-1140146

PATIENT
  Age: 32 Year
  Sex: Male

DRUGS (2)
  1. ROCEFIN [Suspect]
     Indication: PRODUCT USED FOR UNKNOWN INDICATION
     Route: 042
  2. OMEPRAZOLE [Concomitant]
     Route: 042

REACTIONS (2)
  - Dyspnoea [Unknown]
  - Burning sensation [Unknown]
